FAERS Safety Report 15717059 (Version 1)
Quarter: 2018Q4

REPORT INFORMATION
  Report Type: Spontaneous
  Country: SE (occurrence: SE)
  Receive Date: 20181213
  Receipt Date: 20181213
  Transmission Date: 20190205
  Serious: Yes (Other)
  Sender: FDA-Public Use
  Company Number: SE-ABBVIE-18K-150-2589749-00

PATIENT
  Sex: Male

DRUGS (6)
  1. OPNOL [Concomitant]
     Dosage: LEFT AND RIGHT EYE
     Dates: start: 20141124
  2. OPNOL [Concomitant]
     Dosage: LEFT AND RIGHT EYE
     Route: 065
     Dates: start: 20150305
  3. METOJECT [Suspect]
     Active Substance: METHOTREXATE SODIUM
     Indication: PRODUCT USED FOR UNKNOWN INDICATION
     Route: 065
     Dates: start: 20140912, end: 20171011
  4. HUMIRA [Suspect]
     Active Substance: ADALIMUMAB
     Indication: PRODUCT USED FOR UNKNOWN INDICATION
     Route: 058
     Dates: start: 20150305
  5. AZARGA [Concomitant]
     Active Substance: BRINZOLAMIDE\TIMOLOL MALEATE
     Indication: PRODUCT USED FOR UNKNOWN INDICATION
     Dosage: RIGHT EYE
     Route: 065
     Dates: start: 20150305
  6. OPNOL [Concomitant]
     Indication: PRODUCT USED FOR UNKNOWN INDICATION
     Dosage: LEFT AND RIGHT EYE
     Route: 065

REACTIONS (5)
  - Cataract [Unknown]
  - Cataract [Unknown]
  - Adverse drug reaction [Unknown]
  - Medical device implantation [Unknown]
  - Glaucoma [Unknown]

NARRATIVE: CASE EVENT DATE: 20160128
